FAERS Safety Report 12505394 (Version 2)
Quarter: 2016Q4

REPORT INFORMATION
  Report Type: Spontaneous
  Country: FR (occurrence: FR)
  Receive Date: 20160628
  Receipt Date: 20161107
  Transmission Date: 20170207
  Serious: Yes (Hospitalization)
  Sender: FDA-Public Use
  Company Number: FR-SA-2016SA116313

PATIENT
  Age: 56 Year
  Sex: Female

DRUGS (14)
  1. XANAX [Concomitant]
     Active Substance: ALPRAZOLAM
     Dosage: 0.25 MG
  2. BUSULFAN. [Suspect]
     Active Substance: BUSULFAN
     Route: 042
     Dates: start: 20160423, end: 20160424
  3. THYMOGLOBULINE [Suspect]
     Active Substance: LAPINE T-LYMPHOCYTE IMMUNE GLOBULIN
     Route: 042
     Dates: start: 20160425, end: 20160425
  4. IMIPENEM [Suspect]
     Active Substance: IMIPENEM
     Indication: BACTERIAL DISEASE CARRIER
     Route: 042
     Dates: start: 20160427, end: 20160524
  5. PRIMPERAN [Concomitant]
     Active Substance: METOCLOPRAMIDE HYDROCHLORIDE
  6. STILNOX [Concomitant]
     Active Substance: ZOLPIDEM TARTRATE
  7. CHOLURSO [Concomitant]
     Active Substance: URSODIOL
  8. THYMOGLOBULINE [Suspect]
     Active Substance: LAPINE T-LYMPHOCYTE IMMUNE GLOBULIN
     Route: 042
     Dates: start: 20160424, end: 20160424
  9. THYMOGLOBULINE [Suspect]
     Active Substance: LAPINE T-LYMPHOCYTE IMMUNE GLOBULIN
     Route: 042
     Dates: start: 20160426, end: 20160426
  10. ZELITREX [Concomitant]
     Active Substance: VALACYCLOVIR HYDROCHLORIDE
     Dosage: 500 MG
  11. ORACILLINE [Concomitant]
     Active Substance: PENICILLIN V
     Dosage: 1MIU
  12. FLUDARABINE PHOSPHATE. [Suspect]
     Active Substance: FLUDARABINE PHOSPHATE
     Route: 042
     Dates: start: 20160421, end: 20160425
  13. IMIPENEM [Suspect]
     Active Substance: IMIPENEM
     Indication: BACTERIAL DISEASE CARRIER
     Route: 042
     Dates: start: 20160601
  14. STAGID [Concomitant]
     Active Substance: METFORMIN PAMOATE
     Dosage: 700 MG

REACTIONS (3)
  - Alveolitis [Recovered/Resolved]
  - Interstitial lung disease [Recovered/Resolved]
  - Eosinophilia [Recovered/Resolved]

NARRATIVE: CASE EVENT DATE: 20160512
